FAERS Safety Report 22870489 (Version 3)
Quarter: 2024Q4

REPORT INFORMATION
  Report Type: Report from Study
  Country: GB (occurrence: GB)
  Receive Date: 20230827
  Receipt Date: 20241022
  Transmission Date: 20250115
  Serious: Yes (Other)
  Sender: AMGEN
  Company Number: GB-002147023-NVSC2023GB174878

PATIENT
  Sex: Female

DRUGS (2)
  1. AIMOVIG [Suspect]
     Active Substance: ERENUMAB-AOOE
     Indication: Migraine
     Dosage: 140 MG, Q4W
     Route: 058
  2. AIMOVIG [Suspect]
     Active Substance: ERENUMAB-AOOE
     Dosage: 140 MG, Q4W
     Route: 058
     Dates: start: 20230712

REACTIONS (7)
  - Suicidal ideation [Unknown]
  - Migraine [Unknown]
  - Malaise [Unknown]
  - Mental disorder [Unknown]
  - Product prescribing issue [Unknown]
  - Product availability issue [Unknown]
  - Product distribution issue [Unknown]
